FAERS Safety Report 19577004 (Version 1)
Quarter: 2021Q3

REPORT INFORMATION
  Report Type: Spontaneous
  Country: US (occurrence: US)
  Receive Date: 20210719
  Receipt Date: 20210719
  Transmission Date: 20211014
  Serious: No
  Sender: FDA-Public Use
  Company Number: US-GLENMARK PHARMACEUTICALS-2020GMK049496

PATIENT

DRUGS (1)
  1. MUPIROCIN OINTMENT USP, 2% [Suspect]
     Active Substance: MUPIROCIN
     Indication: BURNS SECOND DEGREE
     Dosage: UNK, USED ONLY ONCE (PRESCRIBED TO USE 2 TO 3 TIMES DAY)
     Route: 061
     Dates: start: 20200828, end: 20200828

REACTIONS (6)
  - Skin exfoliation [Not Recovered/Not Resolved]
  - Product physical consistency issue [Unknown]
  - Burns second degree [Not Recovered/Not Resolved]
  - Condition aggravated [Not Recovered/Not Resolved]
  - Product use in unapproved indication [Unknown]
  - Application site pain [Not Recovered/Not Resolved]

NARRATIVE: CASE EVENT DATE: 20200828
